FAERS Safety Report 16327146 (Version 2)
Quarter: 2019Q3

REPORT INFORMATION
  Report Type: Spontaneous
  Country: US (occurrence: US)
  Receive Date: 20190517
  Receipt Date: 20190717
  Transmission Date: 20191004
  Serious: No
  Sender: FDA-Public Use
  Company Number: US-SA-2019SA134161

PATIENT
  Age: 68 Year
  Sex: Female

DRUGS (21)
  1. ANDROGEL [Concomitant]
     Active Substance: TESTOSTERONE
  2. ATORVASTATIN [Concomitant]
     Active Substance: ATORVASTATIN
  3. LINZESS [Concomitant]
     Active Substance: LINACLOTIDE
  4. ULORIC [Concomitant]
     Active Substance: FEBUXOSTAT
  5. LISINOPRIL. [Concomitant]
     Active Substance: LISINOPRIL
  6. EPLERENONE. [Concomitant]
     Active Substance: EPLERENONE
  7. HYDROQUINONE. [Concomitant]
     Active Substance: HYDROQUINONE
  8. NIZATIDINE. [Concomitant]
     Active Substance: NIZATIDINE
  9. ESOMEPRAZOLE. [Concomitant]
     Active Substance: ESOMEPRAZOLE MAGNESIUM
  10. FLOVENT [Concomitant]
     Active Substance: FLUTICASONE PROPIONATE
  11. FUROSEMIDE. [Concomitant]
     Active Substance: FUROSEMIDE
  12. SPIRIVA [Concomitant]
     Active Substance: TIOTROPIUM BROMIDE MONOHYDRATE
  13. METOPROLOL. [Concomitant]
     Active Substance: METOPROLOL
  14. RANEXA [Concomitant]
     Active Substance: RANOLAZINE
  15. DUPIXENT [Suspect]
     Active Substance: DUPILUMAB
     Indication: PRODUCT USED FOR UNKNOWN INDICATION
     Dosage: 300 MG, QOW
     Route: 058
     Dates: start: 20190123
  16. ADVAIR HFA [Concomitant]
     Active Substance: FLUTICASONE PROPIONATE\SALMETEROL XINAFOATE
  17. CLOPIDOGREL [Concomitant]
     Active Substance: CLOPIDOGREL BISULFATE
  18. SINGULAIR [Concomitant]
     Active Substance: MONTELUKAST SODIUM
  19. PROAIR HFA [Concomitant]
     Active Substance: ALBUTEROL SULFATE
  20. SYNTHROID [Concomitant]
     Active Substance: LEVOTHYROXINE SODIUM
  21. THEOPHYLLINE [Concomitant]
     Active Substance: THEOPHYLLINE ANHYDROUS

REACTIONS (2)
  - Incorrect product administration duration [Recovered/Resolved]
  - Product dose omission [Not Recovered/Not Resolved]

NARRATIVE: CASE EVENT DATE: 2019
